FAERS Safety Report 5463894-7 (Version None)
Quarter: 2007Q3

REPORT INFORMATION
  Report Type: 
  Country: None (occurrence: None)
  Receive Date: 20070814
  Receipt Date: 20070108
  Transmission Date: 20080115
  Serious: Yes (Life-Threatening)
  Sender: FDA-Public Use
  Company Number: MEDI-0005209

PATIENT
  Age: 3 Month
  Sex: Male

DRUGS (1)
  1. SYNAGIS [Suspect]
     Indication: PREMATURE BABY
     Dosage: 0.93 ML, INTRAMUSCULAR
     Dates: start: 20061207, end: 20061207

REACTIONS (8)
  - BRONCHOSPASM [None]
  - CHEST DISCOMFORT [None]
  - ERYTHEMA [None]
  - FLUSHING [None]
  - HYPERSENSITIVITY [None]
  - RESPIRATORY DISORDER [None]
  - URTICARIA [None]
  - WHEEZING [None]
